FAERS Safety Report 19040093 (Version 1)
Quarter: 2021Q1

REPORT INFORMATION
  Report Type: Spontaneous
  Country: AR (occurrence: AR)
  Receive Date: 20210322
  Receipt Date: 20210322
  Transmission Date: 20210420
  Serious: Yes (Other)
  Sender: FDA-Public Use
  Company Number: AR-ROCHE-2788942

PATIENT
  Age: 70 Year
  Sex: Female

DRUGS (6)
  1. TECENTRIQ [Suspect]
     Active Substance: ATEZOLIZUMAB
     Indication: LUNG ADENOCARCINOMA
     Dosage: DOSE AND FREQUENCY WERE NOT REPORTED
     Route: 041
     Dates: start: 201910
  2. PEMETREXED. [Concomitant]
     Active Substance: PEMETREXED
     Indication: LUNG ADENOCARCINOMA
     Dosage: DOSE WAS NOT REPORTED
     Dates: start: 201806
  3. CARBOPLATIN. [Concomitant]
     Active Substance: CARBOPLATIN
     Indication: LUNG ADENOCARCINOMA
     Dosage: DOSE WAS NOT REPORTED
     Dates: start: 201806
  4. ALECENSA [Suspect]
     Active Substance: ALECTINIB HYDROCHLORIDE
     Indication: LUNG ADENOCARCINOMA
     Dosage: DOSE AND FREQUENCY WERE NOT REPORTED
     Route: 065
     Dates: start: 20200226
  5. PEMETREXED. [Concomitant]
     Active Substance: PEMETREXED
     Dosage: DOSE AND FREQUENCY WERE NOT REPORTED. MAINTENANCE.
     Dates: start: 201812
  6. DOCETAXEL. [Concomitant]
     Active Substance: DOCETAXEL
     Indication: LUNG ADENOCARCINOMA
     Dosage: DOSE AND FREQUENCY WERE NOT REPORTED
     Dates: start: 201912

REACTIONS (2)
  - Off label use [Unknown]
  - Metastases to liver [Unknown]

NARRATIVE: CASE EVENT DATE: 20200226
